FAERS Safety Report 8530222-X (Version None)
Quarter: 2012Q3

REPORT INFORMATION
  Report Type: 
  Country: None (occurrence: None)
  Receive Date: 20120723
  Receipt Date: 20120720
  Transmission Date: 20120928
  Serious: Yes (Death)
  Sender: FDA-Public Use
  Company Number: PHHY2012IT062531

PATIENT
  Sex: Male

DRUGS (5)
  1. AFINITOR [Suspect]
     Indication: RENAL CANCER
     Dosage: 10 MG, DAILY
     Route: 048
     Dates: start: 20111109
  2. AFINITOR [Suspect]
     Dosage: REDUCED DOSE
     Route: 048
     Dates: end: 20111227
  3. RABEPRAZOLE SODIUM [Concomitant]
     Dosage: 40 MG, UNK
     Route: 048
  4. TELMISARTAN [Concomitant]
     Dosage: 80 MG, UNK
     Route: 048
  5. PREDNISONE [Concomitant]
     Dosage: 25 MG, UNK
     Route: 048

REACTIONS (2)
  - RENAL FAILURE [None]
  - THROMBOCYTOPENIA [None]
